FAERS Safety Report 15594408 (Version 1)
Quarter: 2018Q4

REPORT INFORMATION
  Report Type: Spontaneous
  Country: JP (occurrence: JP)
  Receive Date: 20181107
  Receipt Date: 20181107
  Transmission Date: 20190205
  Serious: Yes (Death, Other)
  Sender: FDA-Public Use
  Company Number: JP-ALLERGAN-1852451US

PATIENT
  Age: 80 Year
  Sex: Male

DRUGS (5)
  1. CARBOCISTEINE [Concomitant]
     Active Substance: CARBOCYSTEINE
     Indication: PRODUCTIVE COUGH
     Dosage: 2 G, QD
     Route: 065
     Dates: start: 2009, end: 20141022
  2. LAC-B [Concomitant]
     Active Substance: BIFIDOBACTERIUM SPP.
     Indication: GASTROINTESTINAL DISORDER
     Dosage: 3 G, QD
     Route: 065
     Dates: start: 2009, end: 20141022
  3. TAKEPRON OD [Concomitant]
     Active Substance: LANSOPRAZOLE
     Indication: PRODUCT USED FOR UNKNOWN INDICATION
     Dosage: 15 MG, QD
     Route: 065
     Dates: start: 2009, end: 20141022
  4. BOTOX [Suspect]
     Active Substance: ONABOTULINUMTOXINA
     Dosage: 100 IU, SINGLE
     Route: 030
     Dates: start: 20131002, end: 20131002
  5. BOTOX [Suspect]
     Active Substance: ONABOTULINUMTOXINA
     Indication: EXTREMITY CONTRACTURE
     Dosage: 100 IU, SINGLE
     Route: 030
     Dates: start: 20140306, end: 20140306

REACTIONS (3)
  - Sepsis [Fatal]
  - Pneumonia [Fatal]
  - Product use in unapproved indication [Unknown]

NARRATIVE: CASE EVENT DATE: 20150904
